FAERS Safety Report 13844926 (Version 1)
Quarter: 2017Q3

REPORT INFORMATION
  Report Type: Spontaneous
  Country: US (occurrence: US)
  Receive Date: 20170808
  Receipt Date: 20170808
  Transmission Date: 20171127
  Serious: Yes (Hospitalization)
  Sender: FDA-Public Use
  Company Number: US-TEVA-793761USA

PATIENT
  Age: 58 Year
  Sex: Female
  Weight: 76.73 kg

DRUGS (8)
  1. PREVACID [Concomitant]
     Active Substance: LANSOPRAZOLE
  2. BACLOFEN. [Concomitant]
     Active Substance: BACLOFEN
  3. SIMVASTATIN. [Concomitant]
     Active Substance: SIMVASTATIN
  4. COPAXONE [Suspect]
     Active Substance: GLATIRAMER ACETATE
     Indication: MULTIPLE SCLEROSIS
     Dosage: 20 MILLIGRAM DAILY;
     Route: 058
  5. AMPYRA [Concomitant]
     Active Substance: DALFAMPRIDINE
  6. WELLBUTRIN [Concomitant]
     Active Substance: BUPROPION HYDROCHLORIDE
  7. VESICARE [Concomitant]
     Active Substance: SOLIFENACIN SUCCINATE
     Route: 048
  8. LEXAPRO [Concomitant]
     Active Substance: ESCITALOPRAM OXALATE

REACTIONS (6)
  - Impaired healing [Unknown]
  - Injection site pain [Unknown]
  - Injection site reaction [Unknown]
  - Ischaemic skin ulcer [Unknown]
  - Abdominal distension [Unknown]
  - Injection site erythema [Unknown]

NARRATIVE: CASE EVENT DATE: 20120610
